FAERS Safety Report 8923524 (Version 4)
Quarter: 2012Q4

REPORT INFORMATION
  Report Type: 
  Country: JP (occurrence: JP)
  Receive Date: 20121123
  Receipt Date: 20121207
  Transmission Date: 20130627
  Serious: Yes (Life-Threatening, Hospitalization, Other)
  Sender: FDA-Public Use
  Company Number: JP-PFIZER INC-2012291279

PATIENT
  Age: 58 Year
  Sex: Female
  Weight: 60.4 kg

DRUGS (9)
  1. LYRICA [Suspect]
     Indication: DIABETIC PERIPHERAL NEUROPATHY
     Dosage: 25 mg, daily
     Route: 048
     Dates: start: 20121107, end: 20121120
  2. NESINA [Suspect]
     Indication: DIABETES MELLITUS
     Dosage: 6.25 mg, 1x/day
     Dates: start: 20121107
  3. BLOPRESS [Concomitant]
     Indication: HYPERTENSION
     Dosage: 8 mg, 1x/day
  4. BLOPRESS [Concomitant]
     Indication: CHRONIC KIDNEY DISEASE
  5. NATRIX [Concomitant]
     Indication: DIURETIC THERAPY
     Dosage: 0.5 mg, 1x/day
     Dates: end: 20121201
  6. NATRIX [Concomitant]
     Indication: HYPERTENSION
  7. LUPRAC [Concomitant]
     Indication: DIURETIC THERAPY
     Dosage: 8 mg, 1x/day
     Dates: start: 20121107, end: 20121204
  8. LASIX [Concomitant]
     Indication: DIURETIC THERAPY
     Dosage: UNK
  9. GLUFAST [Concomitant]
     Indication: DIABETES MELLITUS
     Dosage: 10 mg, 3x/day

REACTIONS (2)
  - Altered state of consciousness [Recovered/Resolved]
  - Generalised oedema [Recovered/Resolved]
